FAERS Safety Report 8245448-2 (Version None)
Quarter: 2012Q1

REPORT INFORMATION
  Report Type: 
  Country: None (occurrence: None)
  Receive Date: 20120329
  Receipt Date: 20120327
  Transmission Date: 20120608
  Serious: Yes (Hospitalization, Disabling)
  Sender: FDA-Public Use
  Company Number: US-MERCK-1110USA04473

PATIENT
  Age: 66 Year
  Sex: Female
  Weight: 66 kg

DRUGS (9)
  1. FOSAMAX [Suspect]
     Route: 048
     Dates: start: 19990901
  2. FOSAMAX [Suspect]
     Indication: OSTEOPENIA
     Route: 048
     Dates: end: 20031201
  3. FOSAMAX [Suspect]
     Indication: OSTEOPOROSIS
     Route: 048
     Dates: end: 20031201
  4. VITAMIN D (UNSPECIFIED) [Concomitant]
     Route: 065
     Dates: start: 19970101
  5. ACTONEL [Suspect]
     Indication: OSTEOPOROSIS
     Route: 048
     Dates: start: 20030101, end: 20100301
  6. FOSAMAX [Suspect]
     Route: 048
     Dates: start: 19990901
  7. ACTONEL [Suspect]
     Indication: OSTEOPENIA
     Route: 048
     Dates: start: 20030101, end: 20100301
  8. CALCIUM (UNSPECIFIED) AND VITAMIN D (UNSPECIFIED) [Concomitant]
     Route: 048
     Dates: start: 19970101
  9. Q-10 [Concomitant]
     Route: 048
     Dates: start: 19970101

REACTIONS (25)
  - CONTUSION [None]
  - ANKLE FRACTURE [None]
  - FALL [None]
  - HYPOKALAEMIA [None]
  - ATRIAL FIBRILLATION [None]
  - INTERVERTEBRAL DISC PROTRUSION [None]
  - MUSCULOSKELETAL PAIN [None]
  - SPINAL OSTEOARTHRITIS [None]
  - LYMPHADENOPATHY [None]
  - OEDEMA PERIPHERAL [None]
  - NAUSEA [None]
  - ANXIETY [None]
  - VITAMIN D DEFICIENCY [None]
  - BURSITIS [None]
  - LIPOMA [None]
  - WEIGHT INCREASED [None]
  - DEPRESSION [None]
  - FEMUR FRACTURE [None]
  - ANAEMIA [None]
  - MYOFASCIAL PAIN SYNDROME [None]
  - HYPOTHYROIDISM [None]
  - LOW TURNOVER OSTEOPATHY [None]
  - GOITRE [None]
  - INTERVERTEBRAL DISC DEGENERATION [None]
  - HYPERTENSION [None]
